FAERS Safety Report 4349341-7 (Version None)
Quarter: 2004Q2

REPORT INFORMATION
  Report Type: 
  Country: None (occurrence: None)
  Receive Date: 20040426
  Receipt Date: 20040326
  Transmission Date: 20050107
  Serious: Yes (Hospitalization)
  Sender: FDA-Public Use
  Company Number: 7859

PATIENT
  Age: 68 Year
  Sex: Male

DRUGS (3)
  1. LEUCOVORIN CALCIUM [Suspect]
  2. FLUOROURACIL [Suspect]
  3. CELECOXIB OR PLACEBO [Concomitant]

REACTIONS (6)
  - COLITIS [None]
  - COMPUTERISED TOMOGRAM ABNORMAL [None]
  - DIVERTICULUM INTESTINAL [None]
  - GASTROOESOPHAGEAL REFLUX DISEASE [None]
  - PYREXIA [None]
  - SINUS TACHYCARDIA [None]
